FAERS Safety Report 5878559-7 (Version None)
Quarter: 2008Q3

REPORT INFORMATION
  Report Type: 
  Country: None (occurrence: None)
  Receive Date: 20080910
  Receipt Date: 20080903
  Transmission Date: 20090109
  Serious: Yes (Hospitalization)
  Sender: FDA-Public Use
  Company Number: 2008BI018833

PATIENT
  Age: 41 Year
  Sex: Female

DRUGS (13)
  1. TYSABRI [Suspect]
     Indication: MULTIPLE SCLEROSIS
     Dosage: 300 MG; QM, IV
     Route: 042
     Dates: start: 20061128
  2. BACLOFEN [Concomitant]
  3. PROVIGIL [Concomitant]
  4. DITROPAN [Concomitant]
  5. LYRICA [Concomitant]
  6. SENOKOT [Concomitant]
  7. ZOLOFT [Concomitant]
  8. VALIUM [Concomitant]
  9. NORCO [Concomitant]
  10. IBUPROFEN [Concomitant]
  11. VITAMIN D WITH CALCIUM [Concomitant]
  12. AMBIEN [Concomitant]
  13. ULTRAM [Concomitant]

REACTIONS (8)
  - ANXIETY [None]
  - CONDITION AGGRAVATED [None]
  - DEPRESSION [None]
  - MUSCLE SPASTICITY [None]
  - NEUROGENIC BLADDER [None]
  - PROGRESSIVE MULTIPLE SCLEROSIS [None]
  - SENSORY DISTURBANCE [None]
  - SYNOVIAL CYST [None]
